FAERS Safety Report 24293239 (Version 1)
Quarter: 2024Q3

REPORT INFORMATION
  Report Type: Spontaneous
  Country: US (occurrence: None)
  Receive Date: 20240906
  Receipt Date: 20240906
  Transmission Date: 20241016
  Serious: No
  Sender: DOMPE FARMACEUTICI
  Company Number: US-FARMAPROD-202308-202311-3531

PATIENT
  Age: 56 Year
  Sex: Male
  Weight: 91.35 kg

DRUGS (49)
  1. OXERVATE [Suspect]
     Active Substance: CENEGERMIN-BKBJ
     Indication: Neurotrophic keratopathy
     Route: 047
     Dates: start: 20231120
  2. OXERVATE [Suspect]
     Active Substance: CENEGERMIN-BKBJ
  3. OMEPRAZOLE [Concomitant]
     Active Substance: OMEPRAZOLE
  4. DEXTROMETHORPHAN HYDROBROMIDE\GUAIFENESIN [Concomitant]
     Active Substance: DEXTROMETHORPHAN HYDROBROMIDE\GUAIFENESIN
     Dosage: EXTENDED RELEASE.
  5. LOVENOX [Concomitant]
     Active Substance: ENOXAPARIN SODIUM
     Dosage: 40MG/0.4ML
  6. AMLODIPINE BESYLATE [Concomitant]
     Active Substance: AMLODIPINE BESYLATE
  7. ALBUTEROL SULFATE [Concomitant]
     Active Substance: ALBUTEROL SULFATE
     Dosage: HYDROFLUOROALKANE, AEROSOLO WITH ADAPTER.
  8. JARDIANCE [Concomitant]
     Active Substance: EMPAGLIFLOZIN
  9. INSULIN GLARGINE [Concomitant]
     Active Substance: INSULIN GLARGINE
  10. INSULIN ASPART [Concomitant]
     Active Substance: INSULIN ASPART
  11. POTASSIUM CHLORIDE [Concomitant]
     Active Substance: POTASSIUM CHLORIDE
  12. OZEMPIC [Concomitant]
     Active Substance: SEMAGLUTIDE
     Dosage: 1/0.75 (3) PEN INJECTOR
  13. ONDANSETRON [Concomitant]
     Active Substance: ONDANSETRON
     Dosage: ORALLY DISPERSIBLE TABLETS.
  14. BETAMETHASONE\CLOTRIMAZOLE [Concomitant]
     Active Substance: BETAMETHASONE\CLOTRIMAZOLE
  15. ASPIRIN [Concomitant]
     Active Substance: ASPIRIN
  16. LISINOPRIL [Concomitant]
     Active Substance: LISINOPRIL
  17. LISINOPRIL [Concomitant]
     Active Substance: LISINOPRIL
  18. ACETAMINOPHEN [Concomitant]
     Active Substance: ACETAMINOPHEN
  19. FENOFIBRATE [Concomitant]
     Active Substance: FENOFIBRATE
  20. HUMALOG KWIKPEN [Concomitant]
     Active Substance: INSULIN LISPRO
     Dosage: INSULIN PEN
  21. GABAPENTIN [Concomitant]
     Active Substance: GABAPENTIN
  22. GABAPENTIN [Concomitant]
     Active Substance: GABAPENTIN
  23. TESTOSTERONE ENANTHATE [Concomitant]
     Active Substance: TESTOSTERONE ENANTHATE
  24. CLINDAMYCIN HYDROCHLORIDE [Concomitant]
     Active Substance: CLINDAMYCIN HYDROCHLORIDE
  25. ERYTHROMYCIN [Concomitant]
     Active Substance: ERYTHROMYCIN
  26. FUROSEMIDE [Concomitant]
     Active Substance: FUROSEMIDE
  27. METOPROLOL SUCCINATE [Concomitant]
     Active Substance: METOPROLOL SUCCINATE
     Dosage: 24 HOURS
  28. PANTOPRAZOLE SODIUM [Concomitant]
     Active Substance: PANTOPRAZOLE SODIUM
  29. TRIAMCINOLONE ACETONIDE [Concomitant]
     Active Substance: TRIAMCINOLONE ACETONIDE
  30. DULOXETINE HYDROCHLORIDE [Concomitant]
     Active Substance: DULOXETINE HYDROCHLORIDE
  31. GABAPENTIN [Concomitant]
     Active Substance: GABAPENTIN
  32. INSULIN DEGLUDEC [Concomitant]
     Active Substance: INSULIN DEGLUDEC
     Dosage: PEN
  33. METFORMIN HYDROCHLORIDE [Concomitant]
     Active Substance: METFORMIN HYDROCHLORIDE
  34. AZELASTINE HYDROCHLORIDE [Concomitant]
     Active Substance: AZELASTINE HYDROCHLORIDE
  35. TESTOSTERONE CYPIONATE [Concomitant]
     Active Substance: TESTOSTERONE CYPIONATE
  36. DEXAMETHASONE\NEOMYCIN\POLYMYXIN B SULFATE [Concomitant]
     Active Substance: DEXAMETHASONE\NEOMYCIN\POLYMYXIN B SULFATE
  37. ONDANSETRON HYDROCHLORIDE [Concomitant]
     Active Substance: ONDANSETRON HYDROCHLORIDE
  38. METOPROLOL SUCCINATE [Concomitant]
     Active Substance: METOPROLOL SUCCINATE
     Dosage: 24 HOURS
  39. CLOPIDOGREL [Concomitant]
     Active Substance: CLOPIDOGREL BISULFATE
  40. MUCUS RELIEF [Concomitant]
     Active Substance: GUAIFENESIN
     Dosage: 12 HOURS
  41. TRESIBA [Concomitant]
     Active Substance: INSULIN DEGLUDEC
  42. ANORO ELLIPTA [Concomitant]
     Active Substance: UMECLIDINIUM BROMIDE\VILANTEROL TRIFENATATE
     Dosage: 62.5-25MCG BLISTER WITH DEVICE.
  43. GLIPIZIDE [Concomitant]
     Active Substance: GLIPIZIDE
  44. ATORVASTATIN CALCIUM [Concomitant]
     Active Substance: ATORVASTATIN CALCIUM
  45. GVOKE [Concomitant]
     Active Substance: GLUCAGON
     Dosage: 1 PACK
  46. FENOFIBRATE [Concomitant]
     Active Substance: FENOFIBRATE
  47. ASPIRIN [Concomitant]
     Active Substance: ASPIRIN
  48. PLAVIX [Concomitant]
     Active Substance: CLOPIDOGREL BISULFATE
  49. METFORMIN [Concomitant]
     Active Substance: METFORMIN HYDROCHLORIDE
     Dosage: EXTENDED RELEASE, GASTRIC.

REACTIONS (1)
  - Eye pain [Not Recovered/Not Resolved]

NARRATIVE: CASE EVENT DATE: 20231101
